FAERS Safety Report 15017854 (Version 1)
Quarter: 2018Q2

REPORT INFORMATION
  Report Type: Spontaneous
  Country: DE (occurrence: DE)
  Receive Date: 20180615
  Receipt Date: 20180615
  Transmission Date: 20180711
  Serious: Yes (Hospitalization)
  Sender: FDA-Public Use
  Company Number: DE-PFIZER INC-2018239109

PATIENT
  Age: 58 Year
  Sex: Female
  Weight: 75 kg

DRUGS (17)
  1. BISOPROLOL [Concomitant]
     Active Substance: BISOPROLOL
     Dosage: 5 MG, 1-0-0-0, TABLETS
     Route: 048
  2. SITAGLIPTIN [Concomitant]
     Active Substance: SITAGLIPTIN
     Dosage: 100 MG, 1-0-0-0, TABLETS
     Route: 048
  3. PANTOPRAZOL [Concomitant]
     Active Substance: PANTOPRAZOLE SODIUM
     Dosage: 40 MG, 1-0-1-0, TABLETS
     Route: 048
  4. OLANZAPIN [Concomitant]
     Active Substance: OLANZAPINE
     Dosage: 5 MG, 1-0-0-0, TABLETS
     Route: 048
  5. MCP [Concomitant]
     Active Substance: METOCLOPRAMIDE HYDROCHLORIDE
     Dosage: 10 MG, AS NEEDED, TABLETS
     Route: 048
  6. METFORMIN [Concomitant]
     Active Substance: METFORMIN HYDROCHLORIDE
     Dosage: 1000 MG, 1-0-1-0, TABLETS
     Route: 048
  7. METAMIZOLE [Concomitant]
     Active Substance: METAMIZOLE
     Dosage: 1000 MG, 1-1-1-1, TABLETS
     Route: 048
  8. VOMEX A [Concomitant]
     Active Substance: DIMENHYDRINATE
     Dosage: UNK UNK, AS NEEDED
     Route: 048
  9. L-THYROXIN [Concomitant]
     Active Substance: LEVOTHYROXINE SODIUM
     Dosage: 50 UG, 1-0-0-0, TABLETS
     Route: 048
  10. PEGFILGRASTIM [Concomitant]
     Active Substance: PEGFILGRASTIM
     Dosage: 6 MG, ACCORDING TO SCHEME, SOLUTION OF INJECTION/ INFUSION
     Route: 042
  11. SPIOLTO [Concomitant]
     Active Substance: OLODATEROL HYDROCHLORIDE\TIOTROPIUM BROMIDE MONOHYDRATE
     Dosage: 2.5|2.5 ?G, 2-0-0-0, DOSE INHALER
     Route: 055
  12. HYDROCHLOROTHIAZID [Concomitant]
     Active Substance: HYDROCHLOROTHIAZIDE
     Dosage: 12.5 MG, 1-0-0-0, TABLETS
     Route: 048
  13. TOPOTECAN HYDROCHLORIDE. [Suspect]
     Active Substance: TOPOTECAN HYDROCHLORIDE
     Dosage: 10.25 MG ACCORDING TO SCHEME, SOLUTION FOR INJECTION/INFUSION
     Route: 042
  14. MORPHINE [Concomitant]
     Active Substance: MORPHINE
     Dosage: 5 MG, 1-0-1-0, SOLUTION FOR INJECTION/ INFUSION
     Route: 058
  15. HALDOL [Concomitant]
     Active Substance: HALOPERIDOL
     Dosage: 0.5 ML, 1-0-1-0, DROPS
     Route: 048
  16. GRANISETRON [Concomitant]
     Active Substance: GRANISETRON
     Dosage: 3.1 MG, EVERY 5 DAYS, TRANSDERMAL PATCH
     Route: 062
  17. TORASEMID [Concomitant]
     Active Substance: TORSEMIDE
     Dosage: 10 MG, 1X/DAY, TABLETS
     Route: 048

REACTIONS (2)
  - Systemic infection [Unknown]
  - Hypotension [Unknown]
